FAERS Safety Report 19040073 (Version 1)
Quarter: 2021Q1

REPORT INFORMATION
  Report Type: Spontaneous
  Country: DE (occurrence: DE)
  Receive Date: 20210323
  Receipt Date: 20210323
  Transmission Date: 20210420
  Serious: Yes (Hospitalization)
  Sender: FDA-Public Use
  Company Number: DE-TEVA-2021-DE-1892086

PATIENT
  Age: 56 Year
  Sex: Female
  Weight: 75 kg

DRUGS (9)
  1. BENSERAZID/LEVODOPA [Concomitant]
     Active Substance: BENSERAZIDE\LEVODOPA
     Dosage: 1 DOSAGE FORMS DAILY; 25|100 MG, 0?1?0?0
  2. RESTEX [Concomitant]
     Active Substance: BENSERAZIDE\LEVODOPA
     Dosage: 1 DOSAGE FORMS DAILY; 0?0?0?1
  3. NEUPRO [Concomitant]
     Active Substance: ROTIGOTINE
     Dosage: 4 MILLIGRAM DAILY; 4 MG / DAY, 0?0?1?0
     Route: 062
  4. FOLSAURE [Concomitant]
     Active Substance: FOLIC ACID
     Dosage: 5 MG / WEEK, LAST ON 19?DEC?2020
  5. METHOTREXATE. [Suspect]
     Active Substance: METHOTREXATE
     Dosage: 10 MG / WEEK, LAST ON 19?DEC?2020
  6. BENAZEPRIL [Concomitant]
     Active Substance: BENAZEPRIL HYDROCHLORIDE
     Dosage: .5 DOSAGE FORMS DAILY; 10 MG, 0.5?0?0?0
  7. PREDNISOLONE. [Concomitant]
     Active Substance: PREDNISOLONE
     Dosage: .5 DOSAGE FORMS DAILY; 5 MG, 0.5?0?0?0
  8. SIMVASTATIN. [Concomitant]
     Active Substance: SIMVASTATIN
     Dosage: 10 MILLIGRAM DAILY; 0?0?1?0
  9. COLECALCIFEROL (VITAMIN D) [Concomitant]
     Active Substance: CHOLECALCIFEROL

REACTIONS (1)
  - Transaminases increased [Unknown]

NARRATIVE: CASE EVENT DATE: 20201223
